FAERS Safety Report 4959805-0 (Version None)
Quarter: 2006Q1

REPORT INFORMATION
  Report Type: 
  Country: None (occurrence: None)
  Receive Date: 20060324
  Receipt Date: 20060315
  Transmission Date: 20060701
  Serious: Yes (Other)
  Sender: FDA-Public Use
  Company Number: 2005144557

PATIENT
  Sex: Female

DRUGS (1)
  1. NORVASC [Suspect]
     Indication: ILL-DEFINED DISORDER

REACTIONS (3)
  - BACK INJURY [None]
  - ROAD TRAFFIC ACCIDENT [None]
  - SINUSITIS [None]
